FAERS Safety Report 16761199 (Version 1)
Quarter: 2019Q3

REPORT INFORMATION
  Report Type: Spontaneous
  Country: US (occurrence: US)
  Receive Date: 20190830
  Receipt Date: 20190830
  Transmission Date: 20191005
  Serious: Yes (Hospitalization)
  Sender: FDA-Public Use
  Company Number: US-ANIPHARMA-2019-US-006639

PATIENT
  Age: 65 Year
  Sex: Female
  Weight: 71.67 kg

DRUGS (3)
  1. PEROXETINE 10MG [Concomitant]
  2. ALLENDRINATE [Concomitant]
  3. ANASTROZOLE. [Suspect]
     Active Substance: ANASTROZOLE
     Indication: BREAST CANCER
     Dosage: 1MG/DAY
     Route: 048
     Dates: start: 2014

REACTIONS (2)
  - Myocardial infarction [Recovered/Resolved]
  - Coronary artery disease [Unknown]

NARRATIVE: CASE EVENT DATE: 201901
